FAERS Safety Report 11287901 (Version 2)
Quarter: 2015Q3

REPORT INFORMATION
  Report Type: Report from Study
  Country: US (occurrence: US)
  Receive Date: 20150721
  Receipt Date: 20150817
  Transmission Date: 20151125
  Serious: Yes (Hospitalization)
  Sender: FDA-Public Use
  Company Number: US-SA-2015SA105787

PATIENT
  Age: 44 Year
  Sex: Male
  Weight: 93.89 kg

DRUGS (1)
  1. ALEMTUZUMAB [Suspect]
     Active Substance: ALEMTUZUMAB
     Indication: MULTIPLE SCLEROSIS
     Route: 065

REACTIONS (9)
  - Nausea [Recovered/Resolved]
  - Cervical vertebral fracture [Not Recovered/Not Resolved]
  - Cerebral haemorrhage [Not Recovered/Not Resolved]
  - Syncope [Recovered/Resolved]
  - Chest pain [Recovered/Resolved]
  - Bradycardia [Not Recovered/Not Resolved]
  - Dizziness [Recovered/Resolved]
  - Lumbar vertebral fracture [Not Recovered/Not Resolved]
  - Bundle branch block right [Not Recovered/Not Resolved]

NARRATIVE: CASE EVENT DATE: 20150508
